FAERS Safety Report 5710051-2 (Version None)
Quarter: 2008Q2

REPORT INFORMATION
  Report Type: 
  Country: None (occurrence: None)
  Receive Date: 20080418
  Receipt Date: 20071003
  Transmission Date: 20081010
  Serious: Yes (Hospitalization)
  Sender: FDA-Public Use
  Company Number: US-ASTRAZENECA-2007UW23091

PATIENT
  Age: 37 Year
  Sex: Female
  Weight: 59 kg

DRUGS (6)
  1. TOPROL-XL [Suspect]
     Indication: BASEDOW'S DISEASE
     Route: 048
  2. TOPROL-XL [Suspect]
     Route: 048
  3. TOPROL-XL [Suspect]
     Route: 048
  4. TAPAZOL [Concomitant]
  5. BIRTH CONTROL PILLS [Concomitant]
  6. VITAMINS [Concomitant]

REACTIONS (4)
  - NAUSEA [None]
  - PALPITATIONS [None]
  - PERIPHERAL COLDNESS [None]
  - TACHYCARDIA [None]
